APPROVED DRUG PRODUCT: RANITIDINE HYDROCHLORIDE
Active Ingredient: RANITIDINE HYDROCHLORIDE
Strength: EQ 150MG BASE
Dosage Form/Route: CAPSULE;ORAL
Application: A075557 | Product #001
Applicant: TEVA PHARMACEUTICALS USA INC
Approved: Oct 31, 2003 | RLD: No | RS: No | Type: DISCN